FAERS Safety Report 13163319 (Version 1)
Quarter: 2017Q1

REPORT INFORMATION
  Report Type: Spontaneous
  Country: US (occurrence: US)
  Receive Date: 20170125
  Receipt Date: 20170125
  Transmission Date: 20170428
  Serious: Yes (Other)
  Sender: FDA-Public Use
  Company Number: None

PATIENT
  Age: 49 Year
  Sex: Female
  Weight: 65 kg

DRUGS (3)
  1. MATAZAPINE [Concomitant]
  2. LANSORPOROZOL [Concomitant]
  3. BOTOX [Suspect]
     Active Substance: ONABOTULINUMTOXINA
     Dates: start: 20170110, end: 20170110

REACTIONS (6)
  - Dysphagia [None]
  - Lip swelling [None]
  - Heart rate increased [None]
  - Dysphonia [None]
  - Dizziness [None]
  - Unevaluable event [None]

NARRATIVE: CASE EVENT DATE: 20161222
